FAERS Safety Report 10494074 (Version 2)
Quarter: 2014Q4

REPORT INFORMATION
  Report Type: Spontaneous
  Country: US (occurrence: MX)
  Receive Date: 20141003
  Receipt Date: 20141003
  Transmission Date: 20150528
  Serious: Yes (Other)
  Sender: FDA-Public Use
  Company Number: US-JNJCP-30000242750

PATIENT
  Sex: Female

DRUGS (1)
  1. NEUTROGENA SPORT FACE SUNBLOCK SPF70PLUS [Suspect]
     Active Substance: AVOBENZONE\HOMOSALATE\OCTISALATE\OCTOCRYLENE\OXYBENZONE
     Indication: PROPHYLAXIS
     Dosage: ONE PER WEEK
     Route: 061
     Dates: start: 201407, end: 201407

REACTIONS (5)
  - Application site pruritus [Unknown]
  - Application site rash [Unknown]
  - Loss of consciousness [None]
  - Application site pain [Unknown]
  - Refusal of treatment by patient [None]

NARRATIVE: CASE EVENT DATE: 201407
